FAERS Safety Report 9027439 (Version 2)
Quarter: 2013Q3

REPORT INFORMATION
  Report Type: Spontaneous
  Country: JP (occurrence: JP)
  Receive Date: 20130124
  Receipt Date: 20130923
  Transmission Date: 20140515
  Serious: Yes (Hospitalization)
  Sender: FDA-Public Use
  Company Number: JP-009507513-1301JPN009857

PATIENT
  Sex: 0

DRUGS (3)
  1. JANUVIA TABLETS 50MG [Suspect]
     Dosage: 50 MG, UNK
     Route: 048
  2. GLIMEPIRIDE [Concomitant]
     Dosage: 6 MG, UNK
     Route: 048
  3. MEDET [Concomitant]
     Dosage: 500 MG, UNK
     Route: 048

REACTIONS (2)
  - Hypoglycaemia [Unknown]
  - Diarrhoea [Unknown]
